FAERS Safety Report 4915213-X (Version None)
Quarter: 2006Q1

REPORT INFORMATION
  Report Type: 
  Country: None (occurrence: None)
  Receive Date: 20060216
  Receipt Date: 20060216
  Transmission Date: 20060701
  Serious: Yes (Hospitalization)
  Sender: FDA-Public Use
  Company Number: None

PATIENT
  Sex: Male
  Weight: 79.3795 kg

DRUGS (18)
  1. VALTREX [Suspect]
     Indication: HERPES ZOSTER
     Dosage: PO PRIOR TO ADMISSION
     Route: 048
  2. IMDUR [Concomitant]
  3. LIPITOR [Concomitant]
  4. PROSCAR [Concomitant]
  5. ATENOLOL [Concomitant]
  6. LANTUS [Concomitant]
  7. AXID [Concomitant]
  8. PROTONIX [Concomitant]
  9. DEMADEX [Concomitant]
  10. POTASSIUM CHLORIDE [Concomitant]
  11. AMARYL [Concomitant]
  12. PLETAL [Concomitant]
  13. NEURONTIN [Concomitant]
  14. PLAVIX [Concomitant]
  15. ASPIRIN [Concomitant]
  16. QUINAMM [Concomitant]
  17. B12 [Concomitant]
  18. BETA CAROTENE [Concomitant]

REACTIONS (3)
  - INFREQUENT BOWEL MOVEMENTS [None]
  - NAUSEA [None]
  - VOMITING [None]
